FAERS Safety Report 25681935 (Version 1)
Quarter: 2025Q3

REPORT INFORMATION
  Report Type: Spontaneous
  Country: US (occurrence: None)
  Receive Date: 20250814
  Receipt Date: 20250814
  Transmission Date: 20251020
  Serious: Yes (Death)
  Sender: FDA-CTU
  Company Number: None

PATIENT
  Age: 38 Year
  Sex: Female
  Weight: 78.3 kg

DRUGS (2)
  1. BUTAL/APAP/CAFFEINE [Suspect]
     Active Substance: ACETAMINOPHEN\BUTALBITAL\CAFFEINE
     Dosage: 1 TABLET EVERY 8 HOURS ORAL
     Route: 048
     Dates: start: 20250515, end: 20250520
  2. PRENATALS FOR PREGNANCY [Concomitant]

REACTIONS (9)
  - Maternal exposure during pregnancy [None]
  - Infection [None]
  - Chromaturia [None]
  - Urine analysis abnormal [None]
  - Urinary tract infection [None]
  - Maternal drugs affecting foetus [None]
  - Foetal heart rate abnormal [None]
  - Foetal death [None]
  - Abortion spontaneous [None]

NARRATIVE: CASE EVENT DATE: 20250514
